FAERS Safety Report 7512775-3 (Version None)
Quarter: 2011Q2

REPORT INFORMATION
  Report Type: 
  Country: None (occurrence: None)
  Receive Date: 20110531
  Receipt Date: 20110523
  Transmission Date: 20111010
  Serious: Yes (Other)
  Sender: FDA-Public Use
  Company Number: B0692985A

PATIENT
  Sex: Female

DRUGS (1)
  1. VALACYCLOVIR HYDROCHLORIDE [Suspect]
     Indication: HERPES VIRUS INFECTION
     Route: 065
     Dates: start: 20110101

REACTIONS (6)
  - DRUG INEFFECTIVE [None]
  - VISUAL ACUITY REDUCED [None]
  - AURA [None]
  - EYE DISORDER [None]
  - VISUAL IMPAIRMENT [None]
  - DRUG RESISTANCE [None]
